FAERS Safety Report 18139172 (Version 1)
Quarter: 2020Q3

REPORT INFORMATION
  Report Type: Spontaneous
  Country: US (occurrence: US)
  Receive Date: 20200812
  Receipt Date: 20200812
  Transmission Date: 20201103
  Serious: No
  Sender: FDA-Public Use
  Company Number: US-ASTRAZENECA-2020SE98647

PATIENT
  Age: 26317 Day
  Sex: Male
  Weight: 85.3 kg

DRUGS (18)
  1. SYMBICORT [Suspect]
     Active Substance: BUDESONIDE\FORMOTEROL FUMARATE DIHYDRATE
     Indication: DYSPNOEA
     Dosage: 160/4.5MCG TWO SPRAYS IN THE MORNING AND TWO SPRAYS AT NIGHT
     Route: 055
     Dates: start: 20190917
  2. CITALOPRAM [Concomitant]
     Active Substance: CITALOPRAM HYDROBROMIDE
  3. METHYLPREDNISOLONE. [Concomitant]
     Active Substance: METHYLPREDNISOLONE
     Indication: RASH
     Dosage: NUMBER OF PILLS CHANGES OVER SEVEN DAYS, FOR SEVEN DAYS
     Route: 048
  4. ATROVASTATIN [Concomitant]
     Active Substance: ATORVASTATIN CALCIUM
  5. QVAR READI?HALER [Concomitant]
     Dosage: TWO SPRAYS IN THE MORNING AND TWO IN THE EVENING
  6. FAMOTIDINE. [Concomitant]
     Active Substance: FAMOTIDINE
     Indication: PRURITUS
     Route: 048
  7. LISINOPRIL. [Concomitant]
     Active Substance: LISINOPRIL
  8. FLONASE [Concomitant]
     Active Substance: FLUTICASONE PROPIONATE
     Dosage: ONE SPRAY IN EACH NOSTRIL IN THE MORNING AND AT NIGHT
  9. GABAPENTIN. [Concomitant]
     Active Substance: GABAPENTIN
  10. TRIAMCINOLONE ECETONIVE [Concomitant]
     Indication: PRURITUS
  11. FASENRA [Suspect]
     Active Substance: BENRALIZUMAB
     Indication: ASTHMA
     Route: 058
     Dates: start: 20200724
  12. MONTELUKAST SOD [Concomitant]
     Active Substance: MONTELUKAST SODIUM
  13. CORTISONE [Concomitant]
     Active Substance: CORTISONE
     Indication: SKIN DISORDER
  14. XYZAL [Concomitant]
     Active Substance: LEVOCETIRIZINE DIHYDROCHLORIDE
  15. METHYLPREDNISOLONE. [Concomitant]
     Active Substance: METHYLPREDNISOLONE
     Indication: URTICARIA
     Dosage: NUMBER OF PILLS CHANGES OVER SEVEN DAYS, FOR SEVEN DAYS
     Route: 048
  16. PROAIR HFA [Concomitant]
     Active Substance: ALBUTEROL SULFATE
     Dosage: 90.0UG AS REQUIRED
  17. SPIRIVA [Concomitant]
     Active Substance: TIOTROPIUM BROMIDE MONOHYDRATE
     Dosage: TWO PUFFS IN THE MORNING
  18. ALLERGY SHOTS [Concomitant]
     Active Substance: UNSPECIFIED INGREDIENT
     Dosage: EVERY TWO WEEKS

REACTIONS (2)
  - Weight decreased [Unknown]
  - Rash pruritic [Unknown]

NARRATIVE: CASE EVENT DATE: 20200728
